FAERS Safety Report 15803135 (Version 2)
Quarter: 2019Q1

REPORT INFORMATION
  Report Type: Spontaneous
  Country: US (occurrence: US)
  Receive Date: 20190109
  Receipt Date: 20190114
  Transmission Date: 20190417
  Serious: Yes (Death, Hospitalization)
  Sender: FDA-Public Use
  Company Number: US-PFIZER INC-2019009150

PATIENT
  Age: 11 Year
  Sex: Male

DRUGS (2)
  1. BENZALKONIUM CHLORIDE/LIDOCAINE HYDROCHLORIDE [Suspect]
     Active Substance: BENZALKONIUM CHLORIDE\LIDOCAINE HYDROCHLORIDE
     Dosage: UNK (2.5%)INSTILLED 177ML INTO THE PORT)
     Route: 050
  2. BENZALKONIUM CHLORIDE. [Concomitant]
     Active Substance: BENZALKONIUM CHLORIDE
     Dosage: UNK (0.013%, INSTILLED 177ML INTO THE PORT)

REACTIONS (4)
  - Respiratory arrest [Fatal]
  - Death [Fatal]
  - Medication error [Fatal]
  - Cardiac arrest [Fatal]

NARRATIVE: CASE EVENT DATE: 2017
